FAERS Safety Report 7290988-6 (Version None)
Quarter: 2011Q1

REPORT INFORMATION
  Report Type: 
  Country: None (occurrence: None)
  Receive Date: 20110214
  Receipt Date: 20110203
  Transmission Date: 20110831
  Serious: Yes (Other)
  Sender: FDA-Public Use
  Company Number: US-JNJFOC-20101000702

PATIENT
  Sex: Female
  Weight: 116.12 kg

DRUGS (27)
  1. REMICADE [Suspect]
     Indication: RHEUMATOID ARTHRITIS
     Route: 042
  2. FOLIC ACID [Concomitant]
     Indication: NUTRITIONAL SUPPORT
     Route: 048
  3. CYMBALTA [Concomitant]
  4. IMITREX [Concomitant]
     Indication: MIGRAINE
  5. METHOTREXATE SODIUM [Concomitant]
     Indication: RHEUMATOID ARTHRITIS
     Route: 048
  6. XANAX [Concomitant]
     Route: 048
  7. VALIUM [Concomitant]
  8. HUMULIN N [Concomitant]
     Indication: TYPE 2 DIABETES MELLITUS
     Dosage: 36 UNITS
  9. NITROGLYCERIN [Concomitant]
  10. CRESTOR [Concomitant]
     Indication: HYPERCHOLESTEROLAEMIA
     Route: 048
  11. INHALERS NOS [Concomitant]
  12. MS CONTIN [Concomitant]
     Indication: PAIN
     Route: 048
  13. SYNTHROID [Concomitant]
     Route: 048
  14. SINGULAIR [Concomitant]
     Indication: ASTHMA
  15. LANSOPRAZOLE [Concomitant]
  16. COUMADIN [Concomitant]
  17. SYMBICORT [Concomitant]
     Indication: EMPHYSEMA
  18. PILOCARPINE [Concomitant]
     Indication: DRY MOUTH
  19. LYRICA [Concomitant]
  20. HUMULIN N [Concomitant]
     Dosage: 13 UNITS
  21. VIT D [Concomitant]
  22. METANX [Concomitant]
  23. CARVEDILOL [Concomitant]
  24. ENABLEX [Concomitant]
     Indication: HYPERTONIC BLADDER
  25. PLAQUENIL [Concomitant]
     Route: 048
  26. DILAUDID [Concomitant]
     Indication: PAIN
     Route: 048
  27. COLCHICINE [Concomitant]
     Indication: GOUT

REACTIONS (12)
  - CHRONIC OBSTRUCTIVE PULMONARY DISEASE [None]
  - BRONCHITIS [None]
  - MYOCARDIAL INFARCTION [None]
  - VAGINITIS BACTERIAL [None]
  - HERPES VIRUS INFECTION [None]
  - VULVOVAGINAL CANDIDIASIS [None]
  - DYSPNOEA [None]
  - ANGINA PECTORIS [None]
  - BODY TINEA [None]
  - SINUSITIS [None]
  - URINARY TRACT INFECTION [None]
  - ORAL CANDIDIASIS [None]
